FAERS Safety Report 5692088-5 (Version None)
Quarter: 2008Q2

REPORT INFORMATION
  Report Type: 
  Country: None (occurrence: None)
  Receive Date: 20080402
  Receipt Date: 20080331
  Transmission Date: 20081010
  Serious: Yes (Death)
  Sender: FDA-Public Use
  Company Number: ES-WYE-G01321808

PATIENT
  Age: 81 Year
  Sex: Female

DRUGS (5)
  1. PIPERACILLIN AND TAZOBACTAM [Suspect]
     Indication: INFECTION PROPHYLAXIS
     Route: 042
     Dates: start: 20080124, end: 20080211
  2. INSULIN [Concomitant]
     Indication: DIABETES MELLITUS
     Dosage: UNKNOWN
  3. ENOXAPARIN SODIUM [Concomitant]
     Dosage: UNKNOWN
     Dates: start: 20080108, end: 20080123
  4. FLAGYL [Suspect]
     Indication: INFECTION PROPHYLAXIS
     Route: 042
     Dates: start: 20080129, end: 20080211
  5. NOLOTIL /NOR/ [Suspect]
     Indication: PAIN
     Route: 042
     Dates: start: 20080129, end: 20080211

REACTIONS (1)
  - PANCYTOPENIA [None]
